FAERS Safety Report 4673289-1 (Version None)
Quarter: 2005Q2

REPORT INFORMATION
  Report Type: 
  Country: None (occurrence: None)
  Receive Date: 20050524
  Receipt Date: 20050524
  Transmission Date: 20051028
  Serious: Yes (Hospitalization)
  Sender: FDA-Public Use
  Company Number: None

PATIENT
  Age: 75 Year
  Sex: Male
  Weight: 116.2 kg

DRUGS (12)
  1. ATROPINE [Suspect]
     Dosage: 0.2 MG SQ
     Route: 058
     Dates: start: 20050228
  2. CISPLATIN [Concomitant]
  3. RINOTECAN 110 MG IN DEXTROSE 5% [Concomitant]
  4. MAGNESIUM SULFATE (50%) 1 GM IN 500 ML NS [Concomitant]
  5. ONDANSETRON 16 MG IN DEXTROSE 5% [Concomitant]
  6. GLIPIZIDE [Concomitant]
  7. LANOXIN [Concomitant]
  8. METOPROLOL TARTRATE [Concomitant]
  9. OMEPRAZOLE [Concomitant]
  10. LOPERAMIDE HCL [Concomitant]
  11. FILGRASTIM [Concomitant]
  12. HEPARIN [Concomitant]

REACTIONS (5)
  - ATRIAL FIBRILLATION [None]
  - CHEST PAIN [None]
  - DYSPNOEA [None]
  - ELECTROCARDIOGRAM ST SEGMENT DEPRESSION [None]
  - MYOCARDIAL ISCHAEMIA [None]
